FAERS Safety Report 7588594-9 (Version None)
Quarter: 2011Q3

REPORT INFORMATION
  Report Type: 
  Country: None (occurrence: None)
  Receive Date: 20110705
  Receipt Date: 20110624
  Transmission Date: 20111222
  Serious: No
  Sender: FDA-Public Use
  Company Number: US-JNJFOC-20110611646

PATIENT
  Sex: Male
  Weight: 19.05 kg

DRUGS (5)
  1. BACLOFEN [Concomitant]
     Indication: MUSCLE RELAXANT THERAPY
     Route: 065
  2. GLEEVEC [Concomitant]
     Indication: CHRONIC MYELOID LEUKAEMIA
     Route: 065
     Dates: start: 20091202, end: 20101201
  3. DURAGESIC-100 [Suspect]
     Indication: PAIN MANAGEMENT
     Route: 062
     Dates: start: 20100301, end: 20110301
  4. SPYRYCEL [Concomitant]
     Indication: CHRONIC MYELOID LEUKAEMIA
     Route: 065
     Dates: start: 20110101
  5. OXYCODONE HCL [Concomitant]
     Indication: BREAKTHROUGH PAIN
     Dosage: AS NEEDED
     Route: 065

REACTIONS (2)
  - NEURALGIA [None]
  - PAIN [None]
